FAERS Safety Report 12202296 (Version 2)
Quarter: 2016Q2

REPORT INFORMATION
  Report Type: Report from Study
  Country: US (occurrence: US)
  Receive Date: 20160322
  Receipt Date: 20160420
  Transmission Date: 20160815
  Serious: Yes (Hospitalization, Other)
  Sender: FDA-Public Use
  Company Number: US-GILEAD-2016-0204659

PATIENT
  Age: 75 Year
  Sex: Female

DRUGS (13)
  1. SPIRONOLACTONE. [Concomitant]
     Active Substance: SPIRONOLACTONE
  2. GABAPENTIN. [Concomitant]
     Active Substance: GABAPENTIN
  3. AMITRIPTYLINE [Concomitant]
     Active Substance: AMITRIPTYLINE
  4. ELIQUIS [Concomitant]
     Active Substance: APIXABAN
  5. ORENITRAM [Suspect]
     Active Substance: TREPROSTINIL
     Dosage: 6.5 UNK, UNK
     Route: 048
     Dates: start: 20160204
  6. FERROUS SULFATE. [Concomitant]
     Active Substance: FERROUS SULFATE
  7. FLUTICASONE [Concomitant]
     Active Substance: FLUTICASONE\FLUTICASONE PROPIONATE
  8. ORENITRAM [Suspect]
     Active Substance: TREPROSTINIL
     Dosage: 6 MG, UNK
     Route: 048
     Dates: start: 20151201
  9. ADEMPAS [Suspect]
     Active Substance: RIOCIGUAT
     Indication: PRODUCT USED FOR UNKNOWN INDICATION
     Dosage: 2.5 MG, TID
     Route: 065
  10. AMBRISENTAN [Suspect]
     Active Substance: AMBRISENTAN
     Indication: PULMONARY HYPERTENSION
     Dosage: 10 MG, QD
     Route: 065
     Dates: start: 20140721
  11. XARELTO [Suspect]
     Active Substance: RIVAROXABAN
     Indication: PRODUCT USED FOR UNKNOWN INDICATION
     Route: 065
  12. TORASEMIDE [Concomitant]
     Active Substance: TORSEMIDE
  13. ORENITRAM [Suspect]
     Active Substance: TREPROSTINIL
     Indication: PRODUCT USED FOR UNKNOWN INDICATION
     Dosage: 6.5 MG, TID
     Route: 048
     Dates: start: 201412

REACTIONS (4)
  - Syncope [Recovered/Resolved]
  - Internal haemorrhage [Recovered/Resolved]
  - Haemorrhage [Recovered/Resolved]
  - Anaemia [Not Recovered/Not Resolved]

NARRATIVE: CASE EVENT DATE: 20160203
